FAERS Safety Report 9601944 (Version 3)
Quarter: 2014Q1

REPORT INFORMATION
  Report Type: Report from Study
  Country: JP (occurrence: JP)
  Receive Date: 20131007
  Receipt Date: 20140122
  Transmission Date: 20141002
  Serious: Yes (Hospitalization)
  Sender: FDA-Public Use
  Company Number: JP-SHIRE-ALL1-2013-06663

PATIENT
  Age: 70 Year
  Sex: Female

DRUGS (46)
  1. 405 (LANTHANUM CARBONATE) [Suspect]
     Indication: HYPERPHOSPHATAEMIA
     Dosage: 1750 MG, UNKNOWN
     Route: 048
     Dates: start: 20130206, end: 20130320
  2. 405 (LANTHANUM CARBONATE) [Suspect]
     Dosage: 1500 MG, UNKNOWN
     Route: 048
     Dates: start: 20130321, end: 20130427
  3. 405 (LANTHANUM CARBONATE) [Suspect]
     Dosage: 1500 MG, UNKNOWN
     Route: 048
     Dates: start: 20130502, end: 20130527
  4. 405 (LANTHANUM CARBONATE) [Suspect]
     Dosage: 2000 MG, UNKNOWN
     Route: 048
     Dates: start: 20130528, end: 20130624
  5. 405 (LANTHANUM CARBONATE) [Suspect]
     Dosage: 2250 MG, UNKNOWN
     Route: 048
     Dates: start: 20130625, end: 20130805
  6. 405 (LANTHANUM CARBONATE) [Suspect]
     Dosage: 1500 MG, UNKNOWN
     Route: 048
     Dates: start: 20130806, end: 20130819
  7. 405 (LANTHANUM CARBONATE) [Suspect]
     Dosage: 1000 MG, UNKNOWN
     Route: 048
     Dates: start: 20130820
  8. FOSRENOL [Concomitant]
     Indication: HYPERPHOSPHATAEMIA
     Dosage: 1000 MG, UNKNOWN
     Route: 048
     Dates: start: 20100806, end: 20110208
  9. FOSRENOL [Concomitant]
     Dosage: 1750 MG, UNKNOWN
     Route: 048
     Dates: start: 20110209, end: 20110705
  10. FOSRENOL [Concomitant]
     Dosage: 1500 MG, UNKNOWN
     Route: 048
     Dates: start: 20110706, end: 20110721
  11. FOSRENOL [Concomitant]
     Dosage: 1250 MG, UNKNOWN
     Route: 048
     Dates: start: 20110722, end: 20110809
  12. FOSRENOL [Concomitant]
     Dosage: 1000 MG, UNKNOWN
     Route: 048
     Dates: start: 20110810, end: 20120220
  13. FOSRENOL [Concomitant]
     Dosage: 750 MG, UNKNOWN
     Route: 048
     Dates: start: 20120221, end: 20120409
  14. FOSRENOL [Concomitant]
     Dosage: 1000 MG, UNKNOWN
     Route: 048
     Dates: start: 20120410, end: 20120423
  15. FOSRENOL [Concomitant]
     Dosage: 1250 MG, UNKNOWN
     Route: 048
     Dates: start: 20120424, end: 20120521
  16. FOSRENOL [Concomitant]
     Dosage: 1500 MG, UNKNOWN
     Route: 048
     Dates: start: 20120522, end: 20121218
  17. FOSRENOL [Concomitant]
     Dosage: 1750 MG, UNKNOWN
     Route: 048
     Dates: start: 20121219, end: 20130205
  18. PRECIPITATED CALCIUM CARBONATE [Concomitant]
     Indication: HYPERPHOSPHATAEMIA
     Dosage: 1.5 G, UNKNOWN
     Route: 048
     Dates: start: 20100511, end: 20100805
  19. PRECIPITATED CALCIUM CARBONATE [Concomitant]
     Dosage: 1 G, UNKNOWN
     Route: 048
     Dates: start: 20100806, end: 20100818
  20. PRECIPITATED CALCIUM CARBONATE [Concomitant]
     Dosage: 0.5 G, UNKNOWN
     Route: 048
     Dates: start: 20100921, end: 20101116
  21. PRECIPITATED CALCIUM CARBONATE [Concomitant]
     Dosage: 1 G, UNKNOWN
     Route: 048
     Dates: start: 20101117, end: 20110524
  22. PRECIPITATED CALCIUM CARBONATE [Concomitant]
     Dosage: 0.5 G, UNKNOWN
     Route: 048
     Dates: start: 20110525, end: 20110608
  23. PRECIPITATED CALCIUM CARBONATE [Concomitant]
     Dosage: 1500 MG, UNKNOWN
     Route: 048
     Dates: start: 20130725, end: 20130819
  24. PRECIPITATED CALCIUM CARBONATE [Concomitant]
     Dosage: 500 MG, UNKNOWN
     Route: 048
     Dates: start: 20130820
  25. OXAROL [Concomitant]
     Indication: PRODUCT USED FOR UNKNOWN INDICATION
     Dosage: 7.5 ?G, 1X/WEEK
     Route: 041
     Dates: start: 20110113, end: 20110608
  26. OXAROL [Concomitant]
     Dosage: 5.0 ?G, 1X/WEEK
     Route: 041
     Dates: start: 20110609, end: 20110705
  27. OXAROL [Concomitant]
     Dosage: 2.5 ?G, 1X/WEEK
     Route: 041
     Dates: start: 20110707
  28. OXAROL [Concomitant]
     Dosage: 5.0 ?G, 1X/WEEK
     Route: 041
     Dates: start: 20111004, end: 20120107
  29. OXAROL [Concomitant]
     Dosage: 7.5 ?G, 1X/WEEK
     Route: 041
     Dates: start: 20120110, end: 20120204
  30. OXAROL [Concomitant]
     Dosage: 12.5 ?G, 1X/WEEK
     Route: 041
     Dates: start: 20120207, end: 20120218
  31. OXAROL [Concomitant]
     Dosage: 10 ?G, 1X/WEEK
     Route: 041
     Dates: start: 20120221, end: 20120616
  32. OXAROL [Concomitant]
     Dosage: 7.5 ?G, 1X/WEEK
     Route: 041
     Dates: start: 20120619
  33. SENNOSIDE                          /00571901/ [Concomitant]
     Indication: PRODUCT USED FOR UNKNOWN INDICATION
     Dosage: 24 MG, UNKNOWN
     Route: 048
  34. SORBITOL [Concomitant]
     Indication: CONSTIPATION
     Dosage: 5 G, UNKNOWN
     Route: 048
  35. LAXOBERON [Concomitant]
     Indication: CONSTIPATION
     Dosage: 20 GTT, UNKNOWN
     Route: 048
  36. ALESION [Concomitant]
     Indication: PRURITUS
     Dosage: 20 MG, UNKNOWN
     Route: 048
  37. ALOSENN                            /00476901/ [Concomitant]
     Indication: CONSTIPATION
     Dosage: 1 G, UNKNOWN
     Route: 048
  38. NESP [Concomitant]
     Indication: PRODUCT USED FOR UNKNOWN INDICATION
     Dosage: 40 ?G, UNKNOWN
     Route: 041
     Dates: start: 20100806
  39. MUCOSTA [Concomitant]
     Indication: PROPHYLAXIS AGAINST GASTROINTESTINAL ULCER
     Dosage: UNK, UNKNOWN
     Route: 048
  40. LOXONIN [Concomitant]
     Indication: PRODUCT USED FOR UNKNOWN INDICATION
     Dosage: UNK, UNKNOWN
     Route: 065
  41. METHYCOBAL [Concomitant]
     Indication: PRODUCT USED FOR UNKNOWN INDICATION
     Dosage: UNK, UNKNOWN
     Route: 065
  42. TAKEPRON [Concomitant]
     Indication: PRODUCT USED FOR UNKNOWN INDICATION
     Dosage: UNK, UNKNOWN
     Route: 065
  43. ADONA                              /00056903/ [Concomitant]
     Indication: PRODUCT USED FOR UNKNOWN INDICATION
     Dosage: UNK, UNKNOWN
     Route: 065
  44. TRANSAMIN [Concomitant]
     Indication: PRODUCT USED FOR UNKNOWN INDICATION
     Dosage: UNK, UNKNOWN
     Route: 065
  45. FESIN                              /00023550/ [Concomitant]
     Indication: PRODUCT USED FOR UNKNOWN INDICATION
     Dosage: UNK, UNKNOWN
     Route: 065
  46. SELBEX [Concomitant]
     Indication: PRODUCT USED FOR UNKNOWN INDICATION
     Dosage: UNK, UNKNOWN
     Route: 065

REACTIONS (1)
  - Gastric ulcer haemorrhage [Recovering/Resolving]
